FAERS Safety Report 4753922-6 (Version None)
Quarter: 2005Q3

REPORT INFORMATION
  Report Type: 
  Country: None (occurrence: None)
  Receive Date: 20050823
  Receipt Date: 20050706
  Transmission Date: 20060218
  Serious: Yes (Disabling)
  Sender: FDA-Public Use
  Company Number: 215879

PATIENT
  Sex: 0

DRUGS (1)
  1. RAPTIVA [Suspect]

REACTIONS (2)
  - ARTHRITIS [None]
  - GOUT [None]
